FAERS Safety Report 4714724-X (Version None)
Quarter: 2005Q3

REPORT INFORMATION
  Report Type: 
  Country: None (occurrence: None)
  Receive Date: 20050715
  Receipt Date: 20050706
  Transmission Date: 20060218
  Serious: Yes (Hospitalization)
  Sender: FDA-Public Use
  Company Number: US-BRISTOL-MYERS SQUIBB COMPANY-13028196

PATIENT
  Sex: Male

DRUGS (1)
  1. ABILIFY [Suspect]
     Dates: start: 20041101

REACTIONS (1)
  - DIABETIC KETOACIDOSIS [None]
